FAERS Safety Report 4436815-3 (Version None)
Quarter: 2004Q3

REPORT INFORMATION
  Report Type: 
  Country: None (occurrence: None)
  Receive Date: 20040728
  Receipt Date: 20040427
  Transmission Date: 20050211
  Serious: No
  Sender: FDA-Public Use
  Company Number: TOS-000631

PATIENT
  Sex: Male
  Weight: 100.2 kg

DRUGS (4)
  1. TOSITUMOMAB, IODINE I 131 [Suspect]
     Indication: NON-HODGKIN'S LYMPHOMA
     Dosage: TOSITUMOMAB 450 MG, INTRAVENOUS
     Route: 042
     Dates: start: 20040324, end: 20040324
  2. TOSITUMOMAB, IODINE I 131 [Suspect]
     Indication: NON-HODGKIN'S LYMPHOMA
     Dosage: TOSITUMOMAB 450 MG, INTRAVENOUS
     Route: 042
     Dates: start: 20040324, end: 20040324
  3. TOSITUMOMAB, IODINE I 131 [Suspect]
     Indication: NON-HODGKIN'S LYMPHOMA
     Dosage: TOSITUMOMAB 450 MG, INTRAVENOUS
     Route: 042
     Dates: start: 20040402, end: 20040402
  4. TOSITUMOMAB, IODINE I 131 [Suspect]
     Indication: NON-HODGKIN'S LYMPHOMA
     Dosage: TOSITUMOMAB 450 MG, INTRAVENOUS
     Route: 042
     Dates: start: 20040402, end: 20040402

REACTIONS (1)
  - DYSPNOEA [None]
